FAERS Safety Report 4462825-6 (Version None)
Quarter: 2004Q3

REPORT INFORMATION
  Report Type: 
  Country: None (occurrence: None)
  Receive Date: 20040927
  Receipt Date: 20040913
  Transmission Date: 20050211
  Serious: No
  Sender: FDA-Public Use
  Company Number: CERZ-10655

PATIENT
  Age: 37 Year
  Sex: Male
  Weight: 102.0593 kg

DRUGS (3)
  1. CEREZYME [Suspect]
     Indication: GAUCHER'S DISEASE
     Dosage: 6200 UNITS Q2WKS IV
     Route: 042
     Dates: start: 19960301
  2. ULTRAM [Concomitant]
  3. FOSAMAX [Concomitant]

REACTIONS (1)
  - CHRONIC LYMPHOCYTIC LEUKAEMIA [None]
